FAERS Safety Report 4609851-1 (Version None)
Quarter: 2005Q1

REPORT INFORMATION
  Report Type: 
  Country: None (occurrence: None)
  Receive Date: 20050314
  Receipt Date: 20050314
  Transmission Date: 20050727
  Serious: Yes (Death)
  Sender: FDA-Public Use
  Company Number: None

PATIENT
  Sex: Male
  Weight: 89.3586 kg

DRUGS (2)
  1. ZYPREXA [Suspect]
     Indication: BIPOLAR DISORDER
     Dosage: SEE IMAGE
     Route: 048
     Dates: start: 20040701, end: 20040901
  2. ZYPREXA [Suspect]
     Indication: BIPOLAR DISORDER
     Dosage: SEE IMAGE
     Route: 048
     Dates: start: 20040901, end: 20050203

REACTIONS (7)
  - ASTHENIA [None]
  - DIABETIC KETOACIDOSIS [None]
  - FEELING ABNORMAL [None]
  - NAUSEA [None]
  - RESPIRATORY DISTRESS [None]
  - SUDDEN DEATH [None]
  - VOMITING [None]
